APPROVED DRUG PRODUCT: BACITRACIN
Active Ingredient: BACITRACIN
Strength: 500 UNITS/GM
Dosage Form/Route: OINTMENT;OPHTHALMIC
Application: A061212 | Product #001
Applicant: PADAGIS US LLC
Approved: Approved Prior to Jan 1, 1982 | RLD: No | RS: Yes | Type: RX